FAERS Safety Report 20198815 (Version 3)
Quarter: 2022Q1

REPORT INFORMATION
  Report Type: Report from Study
  Country: US (occurrence: US)
  Receive Date: 20211217
  Receipt Date: 20220128
  Transmission Date: 20220423
  Serious: Yes (Other)
  Sender: FDA-Public Use
  Company Number: US-TAKEDA-2020TUS046943

PATIENT
  Age: 72 Year
  Sex: Female
  Weight: 66 kg

DRUGS (12)
  1. HUMAN IMMUNOGLOBULIN G [Suspect]
     Active Substance: HUMAN IMMUNOGLOBULIN G
     Indication: Immunodeficiency common variable
     Dosage: 20 GRAM
     Route: 058
     Dates: start: 20170403
  2. ACETAMINOPHEN [Concomitant]
     Active Substance: ACETAMINOPHEN
  3. DIPHENHYDRAMINE [Concomitant]
     Active Substance: DIPHENHYDRAMINE
  4. LIDOCAINE [Concomitant]
     Active Substance: LIDOCAINE
  5. EPINEPHRINE [Concomitant]
     Active Substance: EPINEPHRINE
  6. VASCEPA [Concomitant]
     Active Substance: ICOSAPENT ETHYL
  7. LANTUS [Concomitant]
     Active Substance: INSULIN GLARGINE
  8. PENTOXIFYLLINE [Concomitant]
     Active Substance: PENTOXIFYLLINE
  9. GLYBURIDE [Concomitant]
     Active Substance: GLYBURIDE
  10. VITAMINS [Concomitant]
     Active Substance: VITAMINS
  11. ALLOPURINOL [Concomitant]
     Active Substance: ALLOPURINOL
  12. BENICAR [Concomitant]
     Active Substance: OLMESARTAN MEDOXOMIL

REACTIONS (6)
  - Breast cancer stage I [Unknown]
  - Lack of infusion site rotation [Unknown]
  - Malaise [Unknown]
  - COVID-19 [Recovered/Resolved]
  - Sinus disorder [Unknown]
  - Scar [Unknown]

NARRATIVE: CASE EVENT DATE: 20211210
